FAERS Safety Report 10538261 (Version 4)
Quarter: 2015Q2

REPORT INFORMATION
  Report Type: Report from Study
  Country: RU (occurrence: RU)
  Receive Date: 20141023
  Receipt Date: 20150506
  Transmission Date: 20150821
  Serious: Yes (Other)
  Sender: FDA-Public Use
  Company Number: RU-ASTELLAS-2014US015202

PATIENT
  Age: 29 Year
  Sex: Female
  Weight: 56 kg

DRUGS (4)
  1. TACROLIMUS. [Suspect]
     Active Substance: TACROLIMUS
     Indication: RENAL TRANSPLANT
     Route: 048
     Dates: start: 20140115
  2. VITAMINS                           /00067501/ [Concomitant]
     Active Substance: VITAMINS
     Indication: PREGNANCY
     Dosage: UNK UNK, UNKNOWN FREQ.
     Dates: start: 20140820
  3. IODOMARIN [Concomitant]
     Active Substance: POTASSIUM IODIDE
     Indication: PRODUCT USED FOR UNKNOWN INDICATION
     Dates: start: 20140820
  4. UTROGESTAN [Concomitant]
     Active Substance: PROGESTERONE
     Indication: PREGNANCY
     Route: 067
     Dates: start: 20140820

REACTIONS (4)
  - Abortion spontaneous [Unknown]
  - Anaemia [Recovered/Resolved]
  - Pre-eclampsia [Recovered/Resolved]
  - Intrauterine infection [Unknown]

NARRATIVE: CASE EVENT DATE: 20141115
